FAERS Safety Report 4827886-0 (Version None)
Quarter: 2005Q4

REPORT INFORMATION
  Report Type: 
  Country: None (occurrence: None)
  Receive Date: 20051110
  Receipt Date: 20051024
  Transmission Date: 20060501
  Serious: Yes (Disabling, Other)
  Sender: FDA-Public Use
  Company Number: TRP_0171_2005

PATIENT
  Age: 31 Year
  Sex: Female
  Weight: 117.9352 kg

DRUGS (14)
  1. RIBASPHERE [Suspect]
     Indication: HEPATITIS C
     Dosage: 120 MG QDAY PO
     Route: 048
     Dates: start: 20050402
  2. PEG-INTRON [Suspect]
     Indication: HEPATITIS C
     Dosage: 0.5 ML QWK SC
     Route: 058
     Dates: start: 20050402
  3. MULTIVITAMN [Concomitant]
  4. NASONEX [Concomitant]
  5. NORCO [Concomitant]
  6. PROMETHAZINE [Concomitant]
  7. SKELAXIN [Concomitant]
  8. URSODEXYCHOLIC [Concomitant]
  9. VICODIN [Concomitant]
  10. VITAMIN B COMPLEX CAP [Concomitant]
  11. WELLBUTRIN [Concomitant]
  12. VITAMIN B-12 [Concomitant]
  13. NASONEX SUSPENSION [Concomitant]
  14. NOROC (HYDROCODONE BITATRATE) [Concomitant]

REACTIONS (14)
  - CRYING [None]
  - DEPRESSION [None]
  - EMOTIONAL DISORDER [None]
  - FATIGUE [None]
  - FEAR [None]
  - HALLUCINATION, VISUAL [None]
  - INSOMNIA [None]
  - MOOD SWINGS [None]
  - MUSCLE SPASMS [None]
  - NAUSEA [None]
  - SUICIDAL IDEATION [None]
  - TREMOR [None]
  - VOMITING [None]
  - WEIGHT DECREASED [None]
